FAERS Safety Report 11138159 (Version 3)
Quarter: 2015Q3

REPORT INFORMATION
  Report Type: Report from Study
  Country: PL (occurrence: PL)
  Receive Date: 20150526
  Receipt Date: 20150819
  Transmission Date: 20151125
  Serious: Yes (Hospitalization, Other)
  Sender: FDA-Public Use
  Company Number: PHHY2015PL061301

PATIENT
  Age: 52 Year
  Sex: Male

DRUGS (1)
  1. TASIGNA [Suspect]
     Active Substance: NILOTINIB
     Indication: PRODUCT USED FOR UNKNOWN INDICATION
     Dosage: 400 MG, BID
     Route: 065
     Dates: start: 201307

REACTIONS (9)
  - Respiratory failure [Unknown]
  - Pyrexia [Unknown]
  - Disorientation [Unknown]
  - Balance disorder [Unknown]
  - General physical health deterioration [Unknown]
  - Hydrocephalus [Unknown]
  - Coma [Unknown]
  - Brain neoplasm [Unknown]
  - Loss of consciousness [Not Recovered/Not Resolved]
